FAERS Safety Report 4791172-8 (Version None)
Quarter: 2005Q4

REPORT INFORMATION
  Report Type: 
  Country: None (occurrence: None)
  Receive Date: 20051007
  Receipt Date: 20050818
  Transmission Date: 20060501
  Serious: No
  Sender: FDA-Public Use
  Company Number: 2005UW12322

PATIENT
  Age: 62 Year
  Sex: Male
  Weight: 79.4 kg

DRUGS (2)
  1. SEROQUEL [Suspect]
     Indication: SCHIZOPHRENIA
     Route: 048
     Dates: start: 20050401
  2. ASPIRIN [Concomitant]

REACTIONS (7)
  - BACK PAIN [None]
  - BLOOD UREA INCREASED [None]
  - DEHYDRATION [None]
  - INFECTION [None]
  - MUSCULOSKELETAL STIFFNESS [None]
  - WEIGHT INCREASED [None]
  - WHITE BLOOD CELL COUNT DECREASED [None]
